FAERS Safety Report 8338638-1 (Version None)
Quarter: 2012Q2

REPORT INFORMATION
  Report Type: 
  Country: None (occurrence: None)
  Receive Date: 20120504
  Receipt Date: 20120430
  Transmission Date: 20120825
  Serious: Yes (Hospitalization)
  Sender: FDA-Public Use
  Company Number: DE-AMGEN-DEUNI2012026908

PATIENT
  Age: 70 Year
  Sex: Female
  Weight: 67 kg

DRUGS (3)
  1. ACE INHIBITORS [Concomitant]
  2. PEGFILGRASTIM [Suspect]
     Indication: PROPHYLAXIS
     Dosage: 6 MG, UNK
     Route: 058
     Dates: start: 20120125
  3. INSULIN [Concomitant]

REACTIONS (1)
  - ARRHYTHMIA [None]
